FAERS Safety Report 9364929 (Version 2)
Quarter: 2013Q3

REPORT INFORMATION
  Report Type: Spontaneous
  Country: GB (occurrence: GB)
  Receive Date: 20130624
  Receipt Date: 20130708
  Transmission Date: 20140515
  Serious: Yes (Other)
  Sender: FDA-Public Use
  Company Number: GB-VERTEX PHARMACEUTICALS INC-2013-007401

PATIENT
  Age: 59 Year
  Sex: Male
  Weight: 79 kg

DRUGS (6)
  1. INCIVO [Suspect]
     Indication: HEPATITIS C
     Dosage: WEEKS 1-12.  STOPPED WEEK 15.
  2. RIBAVIRIN [Suspect]
     Indication: HEPATITIS C
     Dosage: DOSAGE FORM: TABLET, DOSE 1.2 WEEKS 1-12
     Route: 048
  3. RIBAVIRIN [Suspect]
     Dosage: DOSAGE FORM: TABLET, WEEK 18
     Route: 048
  4. RIBAVIRIN [Suspect]
     Dosage: DOSAGE FORM: TABLET, WEEK 15
     Route: 048
  5. RIBAVIRIN [Suspect]
     Dosage: DOSAGE FORM: TABLET, WEEK 24
     Route: 048
  6. PEG INTERFERON [Suspect]
     Indication: HEPATITIS C
     Dosage: DOSAGE FORM: INJECTION, WEEK 1-24
     Route: 058

REACTIONS (9)
  - Aplastic anaemia [Unknown]
  - Influenza [Unknown]
  - Blood disorder [Unknown]
  - Folliculitis [Unknown]
  - Leukopenia [Unknown]
  - Thrombocytopenia [Unknown]
  - Abdominal pain upper [Unknown]
  - Weight increased [Unknown]
  - Amylase increased [Unknown]
